FAERS Safety Report 5309032-2 (Version None)
Quarter: 2007Q2

REPORT INFORMATION
  Report Type: 
  Country: None (occurrence: None)
  Receive Date: 20070420
  Receipt Date: 20070410
  Transmission Date: 20071010
  Serious: Yes (Death, Life-Threatening)
  Sender: FDA-Public Use
  Company Number: 2007-00722

PATIENT
  Age: 65 Year
  Sex: Male
  Weight: 65 kg

DRUGS (3)
  1. VELCADE [Suspect]
     Indication: MULTIPLE MYELOMA
     Dosage: 2.30 MG, INTRAVENOUS
     Route: 042
     Dates: start: 20070312
  2. MELPHALAN(MELPHALAN) VIAL [Suspect]
     Indication: MULTIPLE MYELOMA
  3. PREDNISONE [Suspect]
     Indication: MULTIPLE MYELOMA

REACTIONS (11)
  - BRUCELLOSIS [None]
  - DISEASE RECURRENCE [None]
  - GASTROINTESTINAL AMYLOIDOSIS [None]
  - GENERAL PHYSICAL HEALTH DETERIORATION [None]
  - HAEMODYNAMIC INSTABILITY [None]
  - ILEUS PARALYTIC [None]
  - LYMPHOMA [None]
  - PERITONITIS [None]
  - PNEUMONIA STAPHYLOCOCCAL [None]
  - RESPIRATORY DISTRESS [None]
  - TUBERCULOSIS [None]
